FAERS Safety Report 8851057 (Version 2)
Quarter: 2013Q1

REPORT INFORMATION
  Report Type: Spontaneous
  Country: US (occurrence: US)
  Receive Date: 20121019
  Receipt Date: 20130301
  Transmission Date: 20140127
  Serious: Yes (Other)
  Sender: FDA-Public Use
  Company Number: US-009507513-1210USA007323

PATIENT
  Age: 30 Year
  Sex: Female

DRUGS (2)
  1. IMPLANON [Suspect]
     Indication: CONTRACEPTION
     Dosage: 1 DF, UNK
     Dates: start: 20111213, end: 20111213
  2. IMPLANON [Suspect]
     Dosage: 1 DF, UNK
     Dates: end: 201112

REACTIONS (4)
  - Abortion [Unknown]
  - Medical device complication [Unknown]
  - Unintended pregnancy [Recovered/Resolved]
  - Device difficult to use [Unknown]
